FAERS Safety Report 15287224 (Version 1)
Quarter: 2018Q4

REPORT INFORMATION
  Report Type: Spontaneous
  Country: US (occurrence: US)
  Receive Date: 20180817
  Receipt Date: 20180817
  Transmission Date: 20190204
  Serious: No
  Sender: FDA-Public Use
  Company Number: US-TEVA-2018-US-943190

PATIENT
  Sex: Female

DRUGS (1)
  1. MEDROXYPROGESTERONE ACETATE INJECTABLE SUSPENSION, USP [Suspect]
     Active Substance: MEDROXYPROGESTERONE ACETATE
     Dosage: DOSE STRENGTH: 150/1 MG/ML
     Route: 065

REACTIONS (1)
  - Product storage error [Unknown]
